FAERS Safety Report 4737807-7 (Version None)
Quarter: 2005Q3

REPORT INFORMATION
  Report Type: 
  Country: None (occurrence: None)
  Receive Date: 20050809
  Receipt Date: 20050720
  Transmission Date: 20060218
  Serious: Yes (Life-Threatening, Other)
  Sender: FDA-Public Use
  Company Number: JP-BRISTOL-MYERS SQUIBB COMPANY-13047030

PATIENT
  Age: 5 Year
  Sex: Male

DRUGS (2)
  1. VEPESID [Suspect]
     Indication: RETINOBLASTOMA BILATERAL
     Route: 042
     Dates: start: 20001006, end: 20010407
  2. PARAPLATIN [Suspect]
     Indication: RETINOBLASTOMA BILATERAL
     Route: 042
     Dates: start: 20001006, end: 20010407

REACTIONS (5)
  - BLOOD LACTATE DEHYDROGENASE INCREASED [None]
  - CONVULSION [None]
  - INAPPROPRIATE ANTIDIURETIC HORMONE SECRETION [None]
  - NEUROBLASTOMA [None]
  - THERAPY NON-RESPONDER [None]
